FAERS Safety Report 6833186-X (Version None)
Quarter: 2010Q3

REPORT INFORMATION
  Report Type: 
  Country: None (occurrence: None)
  Receive Date: 20100712
  Receipt Date: 20100603
  Transmission Date: 20110219
  Serious: No
  Sender: FDA-Public Use
  Company Number: US-BIOGENIDEC-2010BI018857

PATIENT
  Sex: Male

DRUGS (3)
  1. TYSABRI [Suspect]
     Indication: MULTIPLE SCLEROSIS
     Route: 042
     Dates: start: 20050118
  2. TYSABRI [Suspect]
     Route: 042
     Dates: start: 20080312, end: 20080730
  3. TYSABRI [Suspect]
     Route: 042
     Dates: start: 20091012

REACTIONS (1)
  - MULTIPLE SCLEROSIS [None]
